FAERS Safety Report 8624226-6 (Version None)
Quarter: 2012Q3

REPORT INFORMATION
  Report Type: 
  Country: None (occurrence: None)
  Receive Date: 20120824
  Receipt Date: 20120824
  Transmission Date: 20120928
  Serious: Yes (Life-Threatening, Other)
  Sender: FDA-Public Use
  Company Number: None

PATIENT
  Age: 58 Year
  Sex: Female
  Weight: 77.1115 kg

DRUGS (2)
  1. ZANAFLEX [Suspect]
     Indication: MYALGIA
     Dates: start: 20090429, end: 20120817
  2. ZANAFLEX [Suspect]
     Indication: FIBROMYALGIA
     Dates: start: 20090429, end: 20120817

REACTIONS (4)
  - MYALGIA [None]
  - ASTHENIA [None]
  - ABDOMINAL DISCOMFORT [None]
  - HEPATOMEGALY [None]
